FAERS Safety Report 7585017-0 (Version None)
Quarter: 2011Q2

REPORT INFORMATION
  Report Type: 
  Country: None (occurrence: None)
  Receive Date: 20110630
  Receipt Date: 20110629
  Transmission Date: 20111010
  Serious: Yes (Hospitalization)
  Sender: FDA-Public Use
  Company Number: DE-MERCK-1106DEU00134

PATIENT
  Age: 63 Year

DRUGS (1)
  1. FOSAMAX [Suspect]
     Route: 048
     Dates: start: 20080301, end: 20100301

REACTIONS (2)
  - OSTEOMYELITIS [None]
  - FISTULA [None]
